FAERS Safety Report 7413315-X (Version None)
Quarter: 2011Q2

REPORT INFORMATION
  Report Type: 
  Country: None (occurrence: None)
  Receive Date: 20110413
  Receipt Date: 20110401
  Transmission Date: 20111010
  Serious: Yes (Hospitalization, Other)
  Sender: FDA-Public Use
  Company Number: PHHY2011JP10299

PATIENT
  Age: 80 Year
  Sex: Female

DRUGS (3)
  1. BUFFERIN [Concomitant]
     Dosage: 81 MG, UNK
     Route: 048
  2. LOCHOLEST [Suspect]
     Indication: DYSLIPIDAEMIA
     Dosage: 30 MG, DAILY
     Route: 048
  3. MAINTATE [Concomitant]
     Dosage: UNK
     Route: 048

REACTIONS (4)
  - CONDITION AGGRAVATED [None]
  - CATARACT [None]
  - INTERSTITIAL LUNG DISEASE [None]
  - LOW DENSITY LIPOPROTEIN INCREASED [None]
